FAERS Safety Report 7502624-1 (Version None)
Quarter: 2011Q2

REPORT INFORMATION
  Report Type: 
  Country: None (occurrence: None)
  Receive Date: 20110525
  Receipt Date: 20110512
  Transmission Date: 20111010
  Serious: Yes (Other)
  Sender: FDA-Public Use
  Company Number: PHHY2010US45888

PATIENT
  Sex: Female

DRUGS (5)
  1. METOPROLOL TARTRATE [Concomitant]
     Indication: BLOOD PRESSURE
     Dosage: 25 MG, BID
     Route: 048
  2. ZOFRAN [Concomitant]
     Indication: NAUSEA
     Dosage: 8 MG, Q8H
     Route: 048
  3. TASIGNA [Suspect]
     Indication: GASTRIC CANCER
     Dosage: 400 MG, QD
     Route: 048
     Dates: end: 20100617
  4. TASIGNA [Suspect]
     Dosage: 400 MG, BID
     Route: 048
     Dates: start: 20101129
  5. MORPHINE [Concomitant]
     Indication: PAIN
     Dosage: UNK
     Route: 048

REACTIONS (4)
  - MALAISE [None]
  - VOMITING [None]
  - BLOOD CREATININE INCREASED [None]
  - BLOOD UREA INCREASED [None]
